FAERS Safety Report 6422045-2 (Version None)
Quarter: 2009Q4

REPORT INFORMATION
  Report Type: 
  Country: None (occurrence: None)
  Receive Date: 20091030
  Receipt Date: 20091020
  Transmission Date: 20100525
  Serious: No
  Sender: FDA-Public Use
  Company Number: US-ELI_LILLY_AND_COMPANY-US200910003410

PATIENT
  Sex: Female

DRUGS (11)
  1. CYMBALTA [Suspect]
     Indication: NEURALGIA
     Dosage: 1 D/F, UNK
     Dates: start: 20090101
  2. REQUIP [Concomitant]
     Indication: MUSCLE SPASMS
     Dosage: 1 D/F, UNK
     Dates: start: 20090406
  3. REBIF [Concomitant]
     Indication: MULTIPLE SCLEROSIS
     Dosage: 0.044 MG, 3/W
     Route: 058
     Dates: start: 20051101
  4. ADVIL LIQUI-GELS [Concomitant]
     Indication: PREMEDICATION
     Dosage: 1 D/F, UNK
  5. OTHER ANALGESICS AND ANTIPYRETICS [Concomitant]
     Indication: PAIN
     Dosage: 1 D/F, UNK
  6. SYNTHROID [Concomitant]
     Indication: THYROID DISORDER
     Dosage: 0.15 MG, UNK
  7. LISINOPRIL [Concomitant]
     Indication: HYPERTENSION
     Dosage: 1 D/F, UNK
  8. FISH OIL [Concomitant]
     Dosage: 1 D/F, UNK
  9. CALCIUM W/VITAMIN D NOS [Concomitant]
     Dosage: 1 D/F, UNK
  10. METFORMIN HCL [Concomitant]
     Indication: DIABETES MELLITUS
     Dosage: 1 D/F, UNK
     Dates: start: 20060101
  11. JANUVIA [Concomitant]
     Indication: DIABETES MELLITUS
     Dosage: 1 D/F, UNK
     Dates: start: 20080929

REACTIONS (2)
  - ALANINE AMINOTRANSFERASE INCREASED [None]
  - ASPARTATE AMINOTRANSFERASE INCREASED [None]
